FAERS Safety Report 9353016 (Version 1)
Quarter: 2013Q2

REPORT INFORMATION
  Report Type: Spontaneous
  Country: US (occurrence: None)
  Receive Date: 20130614
  Receipt Date: 20130614
  Transmission Date: 20140414
  Serious: Yes (Life-Threatening, Hospitalization)
  Sender: FDA-Public Use
  Company Number: None

PATIENT
  Age: 46 Year
  Sex: Female
  Weight: 68.04 kg

DRUGS (4)
  1. ALPRAZOLAM (ALPRAZOLAM) [Suspect]
     Indication: PANIC ATTACK
     Dosage: 1 TABLET 3X DAILY   MOUTH
     Route: 048
     Dates: start: 2009, end: 20131126
  2. ATENOLOL [Concomitant]
  3. IRBESTAN / AVAPRO [Concomitant]
  4. FLINTSTONE CHEWABLE VITAMIN / W IRON [Concomitant]

REACTIONS (14)
  - Dry mouth [None]
  - Dry eye [None]
  - Thirst [None]
  - Skin infection [None]
  - Blood blister [None]
  - Swelling [None]
  - Eye infection [None]
  - Anaemia [None]
  - Headache [None]
  - Anger [None]
  - Agoraphobia [None]
  - Panic attack [None]
  - Hypertension [None]
  - Paraesthesia [None]
